FAERS Safety Report 12999752 (Version 2)
Quarter: 2016Q4

REPORT INFORMATION
  Report Type: Spontaneous
  Country: GR (occurrence: GR)
  Receive Date: 20161205
  Receipt Date: 20161214
  Transmission Date: 20170207
  Serious: Yes (Hospitalization, Other)
  Sender: FDA-Public Use
  Company Number: GR-PFIZER INC-2016553458

PATIENT
  Age: 57 Year
  Sex: Female

DRUGS (7)
  1. ASPIRIN BAYER [Suspect]
     Active Substance: ASPIRIN
     Dosage: UNK
  2. PRASUGREL [Suspect]
     Active Substance: PRASUGREL
     Dosage: UNK
  3. COLCHICINE. [Suspect]
     Active Substance: COLCHICINE
     Dosage: 0.5 MG X2
  4. METHYLPREDNISOLONE. [Suspect]
     Active Substance: METHYLPREDNISOLONE
     Indication: DRESSLER^S SYNDROME
     Dosage: 16 MG X 3
  5. METOPROLOL. [Suspect]
     Active Substance: METOPROLOL
     Dosage: UNK
  6. METHYLPREDNISOLONE. [Suspect]
     Active Substance: METHYLPREDNISOLONE
     Dosage: 16 MG X 2
  7. PREDNISONE. [Suspect]
     Active Substance: PREDNISONE
     Dosage: 30 MG, 1X/DAY

REACTIONS (6)
  - Dressler^s syndrome [Unknown]
  - Cushing^s syndrome [Unknown]
  - Pericarditis constrictive [Unknown]
  - Respiratory disorder [Unknown]
  - Abdominal pain [Unknown]
  - Weight increased [Unknown]
